FAERS Safety Report 4509685-2 (Version None)
Quarter: 2004Q4

REPORT INFORMATION
  Report Type: 
  Country: None (occurrence: None)
  Receive Date: 20041124
  Receipt Date: 20041115
  Transmission Date: 20050328
  Serious: Yes (Other)
  Sender: FDA-Public Use
  Company Number: US-JNJFOC-20041103873

PATIENT
  Sex: Female

DRUGS (2)
  1. DURAGESIC [Suspect]
     Route: 062
     Dates: start: 20040901
  2. LOTENSIN [Concomitant]
     Indication: BLOOD PRESSURE

REACTIONS (3)
  - DIPLEGIA [None]
  - DYSPNOEA [None]
  - VOMITING [None]
